FAERS Safety Report 9452567 (Version 1)
Quarter: 2013Q3

REPORT INFORMATION
  Report Type: Spontaneous
  Country: US (occurrence: None)
  Receive Date: 20130808
  Receipt Date: 20130808
  Transmission Date: 20140515
  Serious: No
  Sender: FDA-Public Use
  Company Number: None

PATIENT
  Sex: Female

DRUGS (3)
  1. VICTRELIS 200 MG [Suspect]
     Indication: HEPATITIS C
     Dosage: DECREASED DO
     Route: 048
     Dates: start: 20130704
  2. PEGASYS 180MCG GENENTECH [Suspect]
     Indication: HEPATITIS C
     Route: 058
     Dates: start: 20130610
  3. RIBASPHERE [Concomitant]

REACTIONS (3)
  - Treatment noncompliance [None]
  - Convulsion [None]
  - Drug administration error [None]
